FAERS Safety Report 7091264-7 (Version None)
Quarter: 2010Q4

REPORT INFORMATION
  Report Type: 
  Country: None (occurrence: None)
  Receive Date: 20101109
  Receipt Date: 20101102
  Transmission Date: 20110411
  Serious: Yes (Death)
  Sender: FDA-Public Use
  Company Number: JP-ABBOTT-10P-087-0681294-00

PATIENT
  Age: 90 Year
  Sex: Male
  Weight: 56 kg

DRUGS (10)
  1. LEUPROLIDE ACETATE [Suspect]
     Indication: PROSTATE CANCER STAGE IV
     Route: 058
     Dates: start: 20080611, end: 20090724
  2. TAXOTERE [Concomitant]
     Indication: PROSTATE CANCER STAGE IV
     Route: 042
     Dates: start: 20081014, end: 20081014
  3. ESTRAMUSTINE PHOSPHATE SODIUM [Concomitant]
     Indication: PROSTATE CANCER STAGE IV
     Route: 048
     Dates: start: 20080611, end: 20091019
  4. ADALAT [Concomitant]
     Indication: HYPERTENSION
     Route: 048
     Dates: end: 20090113
  5. ITOROL [Concomitant]
     Indication: ANGINA PECTORIS
     Route: 048
     Dates: end: 20091019
  6. 8-HOUR BAYER [Concomitant]
     Indication: ANGINA PECTORIS
     Route: 048
     Dates: end: 20091019
  7. LASIX [Concomitant]
     Indication: HYPERTENSION
     Route: 048
     Dates: end: 20091019
  8. ZANTAC [Concomitant]
     Indication: GASTRITIS
     Route: 048
     Dates: start: 20080611, end: 20090113
  9. URIEF [Concomitant]
     Indication: GASTRITIS
     Route: 048
     Dates: end: 20091019
  10. PROTECADIN [Concomitant]
     Indication: GASTRITIS
     Route: 048
     Dates: start: 20090114, end: 20091019

REACTIONS (1)
  - PROSTATE CANCER [None]
